FAERS Safety Report 25149136 (Version 1)
Quarter: 2025Q2

REPORT INFORMATION
  Report Type: Spontaneous
  Country: BR (occurrence: BR)
  Receive Date: 20250402
  Receipt Date: 20250402
  Transmission Date: 20250717
  Serious: Yes (Hospitalization)
  Sender: SANDOZ
  Company Number: BR-002147023-NVSC2025BR052033

PATIENT
  Sex: Female

DRUGS (2)
  1. EXELON [Suspect]
     Active Substance: RIVASTIGMINE TARTRATE
     Dosage: 4.6 MG, QD ((PATCH 5, 9 MILLIGRAM)
     Route: 062
  2. EXELON [Suspect]
     Active Substance: RIVASTIGMINE TARTRATE
     Indication: Dementia Alzheimer^s type
     Dosage: 9.5 MG, QD (PATCH 10, 18 MILLIGRAM)
     Route: 062

REACTIONS (3)
  - Agitation [Unknown]
  - Vomiting [Unknown]
  - Medication error [Unknown]
